FAERS Safety Report 6988164-7 (Version None)
Quarter: 2010Q3

REPORT INFORMATION
  Report Type: 
  Country: None (occurrence: None)
  Receive Date: 20100916
  Receipt Date: 20100902
  Transmission Date: 20110219
  Serious: Yes (Other)
  Sender: FDA-Public Use
  Company Number: US-ROCHE-725740

PATIENT
  Age: 54 Year
  Sex: Male

DRUGS (4)
  1. AVASTIN [Suspect]
     Route: 065
  2. LEUCOVORIN CALCIUM [Suspect]
     Route: 065
  3. FLUOROURACIL [Suspect]
     Route: 065
  4. CAMPTOSAR [Suspect]
     Route: 065

REACTIONS (1)
  - MALAISE [None]
